FAERS Safety Report 4302171-4 (Version None)
Quarter: 2004Q1

REPORT INFORMATION
  Report Type: 
  Country: None (occurrence: None)
  Receive Date: 20040220
  Receipt Date: 20040206
  Transmission Date: 20041129
  Serious: Yes (Death)
  Sender: FDA-Public Use
  Company Number: 2003123377

PATIENT
  Age: 72 Year
  Sex: Male

DRUGS (7)
  1. SILDENAFIL (SILDENAFIL) [Suspect]
     Indication: ERECTILE DYSFUNCTION
     Dosage: ORAL
     Route: 048
  2. ISOSORBIDE DINITRATE [Suspect]
     Indication: ILL-DEFINED DISORDER
  3. FINASTERIDE [Concomitant]
  4. TAMSULOSIN HYDROCHLORIDE (TAMSULOSIN HYDROCHLORIDE) [Concomitant]
  5. DOSULEPIN HYDROCHLORIDE (DOSULEPIN HYDROCHLORIDE) [Concomitant]
  6. AMLODIPINE BESYLATE [Concomitant]
  7. PAROXETINE HCL [Concomitant]

REACTIONS (1)
  - DRUG INTERACTION [None]
